FAERS Safety Report 12820918 (Version 2)
Quarter: 2017Q3

REPORT INFORMATION
  Report Type: Report from Study
  Country: PL (occurrence: PL)
  Receive Date: 20161006
  Receipt Date: 20170728
  Transmission Date: 20171127
  Serious: Yes (Hospitalization)
  Sender: FDA-Public Use
  Company Number: PHHY2016PL076025

PATIENT
  Sex: Male

DRUGS (3)
  1. EXJADE [Suspect]
     Active Substance: DEFERASIROX
     Dosage: UNK
     Route: 065
     Dates: end: 20170531
  2. EXJADE [Suspect]
     Active Substance: DEFERASIROX
     Dosage: UNK
     Route: 065
     Dates: end: 20160618
  3. EXJADE [Suspect]
     Active Substance: DEFERASIROX
     Indication: ACUTE MYELOID LEUKAEMIA
     Dosage: 250 MG, QD
     Route: 065
     Dates: start: 20160429, end: 20160514

REACTIONS (2)
  - Upper respiratory tract infection [Unknown]
  - Transaminases increased [Unknown]
